FAERS Safety Report 4817386-6 (Version None)
Quarter: 2005Q4

REPORT INFORMATION
  Report Type: 
  Country: None (occurrence: None)
  Receive Date: 20051101
  Receipt Date: 20050616
  Transmission Date: 20060501
  Serious: Yes (Other)
  Sender: FDA-Public Use
  Company Number: 200512036FR

PATIENT
  Age: 19 Year
  Sex: Female
  Weight: 68 kg

DRUGS (2)
  1. KETEK [Suspect]
     Indication: SINUSITIS
     Route: 048
     Dates: start: 20050506, end: 20050507
  2. LAMISIL [Concomitant]
     Indication: FUNGAL INFECTION
     Route: 048
     Dates: start: 20050426, end: 20050507

REACTIONS (7)
  - DIZZINESS [None]
  - FORMICATION [None]
  - GAIT DISTURBANCE [None]
  - INFLAMMATION [None]
  - MUSCLE CONTRACTURE [None]
  - MUSCLE SPASMS [None]
  - MUSCULOSKELETAL STIFFNESS [None]
